FAERS Safety Report 8520793-1 (Version None)
Quarter: 2012Q3

REPORT INFORMATION
  Report Type: 
  Country: None (occurrence: None)
  Receive Date: 20120719
  Receipt Date: 20120710
  Transmission Date: 20120928
  Serious: No
  Sender: FDA-Public Use
  Company Number: US-BAYER-2012-070582

PATIENT

DRUGS (3)
  1. ALEVE (CAPLET) [Suspect]
     Indication: PYREXIA
     Dosage: UNK
     Route: 048
  2. ADVIL [Concomitant]
     Indication: PYREXIA
  3. THERAFLU [Concomitant]
     Indication: PYREXIA

REACTIONS (1)
  - PYREXIA [None]
